FAERS Safety Report 12808005 (Version 1)
Quarter: 2016Q4

REPORT INFORMATION
  Report Type: Spontaneous
  Country: JP (occurrence: JP)
  Receive Date: 20161004
  Receipt Date: 20161004
  Transmission Date: 20170207
  Serious: Yes (Hospitalization, Other)
  Sender: FDA-Public Use
  Company Number: JP-JNJFOC-20161001198

PATIENT
  Age: 18 Year
  Sex: Female

DRUGS (3)
  1. INVEGA [Suspect]
     Active Substance: PALIPERIDONE
     Indication: SCHIZOPHRENIA
     Dosage: MORNING
     Route: 048
  2. RISPERIDONE. [Suspect]
     Active Substance: RISPERIDONE
     Indication: SCHIZOPHRENIA
     Route: 048
  3. RISPERIDONE. [Suspect]
     Active Substance: RISPERIDONE
     Indication: SCHIZOPHRENIA
     Dosage: EVENING
     Route: 048

REACTIONS (4)
  - Off label use [Unknown]
  - Electrocardiogram QT prolonged [Not Recovered/Not Resolved]
  - Surgery [Not Recovered/Not Resolved]
  - Inappropriate schedule of drug administration [Unknown]
